FAERS Safety Report 10165872 (Version 1)
Quarter: 2014Q2

REPORT INFORMATION
  Report Type: Spontaneous
  Country: US (occurrence: US)
  Receive Date: 20140510
  Receipt Date: 20140510
  Transmission Date: 20141212
  Serious: No
  Sender: FDA-Public Use
  Company Number: US-BRISTOL-MYERS SQUIBB COMPANY-19954973

PATIENT
  Age: 55 Year
  Sex: Female
  Weight: 117.91 kg

DRUGS (7)
  1. BYDUREON 2MG VIAL + SYRINGE [Suspect]
     Indication: TYPE 2 DIABETES MELLITUS
     Dates: start: 20131221
  2. CRESTOR [Concomitant]
     Route: 048
  3. LUVOX [Concomitant]
     Dosage: ER
     Route: 048
  4. LISINOPRIL [Concomitant]
     Route: 048
  5. LISINOPRIL [Concomitant]
     Route: 048
  6. NEURONTIN [Concomitant]
     Route: 048
  7. XANAX [Concomitant]
     Route: 048

REACTIONS (2)
  - Blood glucose increased [Not Recovered/Not Resolved]
  - Neuropathy peripheral [Not Recovered/Not Resolved]
